FAERS Safety Report 7492796-X (Version None)
Quarter: 2011Q2

REPORT INFORMATION
  Report Type: 
  Country: None (occurrence: None)
  Receive Date: 20110519
  Receipt Date: 20110217
  Transmission Date: 20111010
  Serious: No
  Sender: FDA-Public Use
  Company Number: US-BAYER-2011-016537

PATIENT
  Sex: Female

DRUGS (2)
  1. AVELOX [Suspect]
     Indication: PNEUMONIA
     Dosage: 400 MG, QD
     Route: 048
     Dates: start: 20110209, end: 20110213
  2. SYNTHROID [Concomitant]

REACTIONS (6)
  - DIZZINESS [None]
  - DISORIENTATION [None]
  - DIARRHOEA [None]
  - CONFUSIONAL STATE [None]
  - ANORECTAL DISCOMFORT [None]
  - BALANCE DISORDER [None]
